FAERS Safety Report 7866453-1 (Version None)
Quarter: 2011Q4

REPORT INFORMATION
  Report Type: 
  Country: None (occurrence: None)
  Receive Date: 20111028
  Receipt Date: 20110620
  Transmission Date: 20120403
  Serious: No
  Sender: FDA-Public Use
  Company Number: US-GLAXOSMITHKLINE-A0932034A

PATIENT
  Age: 66 Year
  Sex: Female

DRUGS (6)
  1. FLEXERIL [Concomitant]
  2. XANAX [Concomitant]
  3. ALBUTEROL SULFATE [Concomitant]
  4. ADVAIR DISKUS 100/50 [Suspect]
     Indication: CHRONIC OBSTRUCTIVE PULMONARY DISEASE
     Dosage: 1PUFF TWICE PER DAY
     Route: 055
  5. PRILOSEC [Concomitant]
  6. NEBULIZER [Concomitant]

REACTIONS (1)
  - ORAL DISCHARGE [None]
